FAERS Safety Report 8264598-8 (Version None)
Quarter: 2012Q2

REPORT INFORMATION
  Report Type: 
  Country: None (occurrence: None)
  Receive Date: 20120406
  Receipt Date: 20120328
  Transmission Date: 20120825
  Serious: Yes (Hospitalization)
  Sender: FDA-Public Use
  Company Number: GB-UCBSA-053895

PATIENT
  Age: 57 Year
  Sex: Female

DRUGS (11)
  1. CIMZIA [Suspect]
     Indication: RHEUMATOID ARTHRITIS
     Dosage: 2 INJECTIONS
     Route: 058
     Dates: start: 20120316, end: 20120316
  2. FUROSEMIDE [Concomitant]
  3. METHOTREXATE [Concomitant]
  4. TRAMADOL HCL [Concomitant]
  5. OMEPRAZOLE [Concomitant]
  6. LEVOTHYROXINE SODIUM [Concomitant]
  7. LEFLUNOMIDE [Concomitant]
  8. TRAVATAN EYE DROPS [Concomitant]
     Route: 047
  9. ACETAMINOPHEN AND CODEINE PHOSPHATE [Concomitant]
  10. SIMVASTATIN [Concomitant]
     Dosage: 40 MG
  11. EPROSARTAN [Concomitant]

REACTIONS (9)
  - BODY TEMPERATURE INCREASED [None]
  - BLOOD PRESSURE INCREASED [None]
  - NAUSEA [None]
  - CHEST PAIN [None]
  - HEADACHE [None]
  - RHEUMATOID ARTHRITIS [None]
  - HOT FLUSH [None]
  - DYSPNOEA [None]
  - MUSCULOSKELETAL CHEST PAIN [None]
